FAERS Safety Report 5388912-6 (Version None)
Quarter: 2007Q3

REPORT INFORMATION
  Report Type: 
  Country: None (occurrence: None)
  Receive Date: 20070717
  Receipt Date: 20070706
  Transmission Date: 20080115
  Serious: Yes (Other)
  Sender: FDA-Public Use
  Company Number: PHBS2007JP11478

PATIENT
  Age: 63 Year
  Sex: Female

DRUGS (4)
  1. AREDIA [Suspect]
     Route: 042
  2. TRASTUZUMAB [Concomitant]
  3. CYCLOPHOSPHAMIDE [Concomitant]
  4. DOXIFLURIDINE [Concomitant]

REACTIONS (1)
  - OSTEONECROSIS [None]
